FAERS Safety Report 6076372-1 (Version None)
Quarter: 2009Q1

REPORT INFORMATION
  Report Type: 
  Country: None (occurrence: None)
  Receive Date: 20090213
  Receipt Date: 20090207
  Transmission Date: 20090719
  Serious: Yes (Other)
  Sender: FDA-Public Use
  Company Number: US-RANBAXY-2009RR-21255

PATIENT
  Age: 78 Year
  Sex: Female

DRUGS (9)
  1. FUROSEMIDE TABLET [Suspect]
     Indication: POLYURIA
  2. LASIX [Suspect]
     Indication: CARDIAC FAILURE CONGESTIVE
     Dosage: 40 MG, QD
     Route: 048
  3. POTASSIUM CHLORIDE [Concomitant]
     Dosage: 10 ML, BID
     Route: 048
  4. THIAMINE HCL [Concomitant]
     Dosage: 100 MG, BID
  5. VALLIUM [Concomitant]
     Dosage: 5 MG, QD
  6. DULCOLAX [Concomitant]
  7. DARVON [Concomitant]
     Dosage: 65 MG, PRN
  8. HYDRODIURIL [Concomitant]
     Indication: POLYURIA
  9. TRIHEXYPHENIDYL [Concomitant]

REACTIONS (1)
  - PEMPHIGOID [None]
